FAERS Safety Report 15833043 (Version 1)
Quarter: 2018Q4

REPORT INFORMATION
  Report Type: Spontaneous
  Country: US (occurrence: US)
  Receive Date: 20181219
  Receipt Date: 20181219
  Transmission Date: 20190205
  Serious: Yes (Other)
  Sender: FDA-Public Use
  Company Number: None

PATIENT
  Age: 31 Year
  Sex: Male

DRUGS (1)
  1. VANCOMYCIN [Suspect]
     Active Substance: VANCOMYCIN
     Indication: INFECTION
     Dosage: ?          OTHER DOSE:1.5 GM;?
     Route: 042
     Dates: start: 20181011, end: 20181016

REACTIONS (8)
  - Oedema [None]
  - Pyrexia [None]
  - Dehydration [None]
  - Cognitive disorder [None]
  - Blood creatinine increased [None]
  - Fall [None]
  - Hypersensitivity [None]
  - Drug eruption [None]

NARRATIVE: CASE EVENT DATE: 20181020
